FAERS Safety Report 5096598-3 (Version None)
Quarter: 2006Q3

REPORT INFORMATION
  Report Type: 
  Country: None (occurrence: None)
  Receive Date: 20060830
  Receipt Date: 20060821
  Transmission Date: 20061208
  Serious: Yes (Hospitalization, Other)
  Sender: FDA-Public Use
  Company Number: HQWYE788203AUG06

PATIENT
  Age: 81 Year
  Sex: Female

DRUGS (4)
  1. ETODOLAC [Suspect]
     Indication: BACK PAIN
     Dosage: 400 MG, 1X PER 1 DAY; ORAL
     Route: 048
     Dates: start: 20060501, end: 20060629
  2. BUP-4 (PROPIVERINE HYDROCHLORIDE) [Concomitant]
  3. MAGNESIUM OXIDE [Concomitant]
  4. GASMOTIN (MOSAPRIDE CITRATE) [Concomitant]

REACTIONS (2)
  - EOSINOPHILIC PNEUMONIA CHRONIC [None]
  - THERAPY NON-RESPONDER [None]
